FAERS Safety Report 8987203 (Version 1)
Quarter: 2012Q4

REPORT INFORMATION
  Report Type: 
  Country: US (occurrence: US)
  Receive Date: 20121226
  Receipt Date: 20121226
  Transmission Date: 20130627
  Serious: Yes (Death)
  Sender: FDA-Public Use
  Company Number: US-ROCHE-1157295

PATIENT
  Age: 60 Year
  Sex: Male

DRUGS (5)
  1. ERIVEDGE [Suspect]
     Indication: PRODUCT USED FOR UNKNOWN INDICATION
     Route: 048
  2. KLONOPIN [Concomitant]
     Route: 048
  3. BUMEX [Concomitant]
     Route: 048
  4. XANAX [Concomitant]
     Route: 048
  5. COREG [Concomitant]
     Route: 048

REACTIONS (3)
  - Death [Fatal]
  - Abdominal pain upper [Unknown]
  - Gastric disorder [Unknown]
